FAERS Safety Report 21828592 (Version 3)
Quarter: 2023Q1

REPORT INFORMATION
  Report Type: Report from Study
  Country: US (occurrence: US)
  Receive Date: 20230106
  Receipt Date: 20230126
  Transmission Date: 20230417
  Serious: Yes (Hospitalization)
  Sender: FDA-Public Use
  Company Number: US-ABBVIE-4259758

PATIENT
  Sex: Female

DRUGS (1)
  1. VENCLEXTA [Suspect]
     Active Substance: VENETOCLAX
     Indication: Chronic lymphocytic leukaemia
     Route: 048
     Dates: start: 20221228

REACTIONS (19)
  - Platelet transfusion [Unknown]
  - White blood cell count decreased [Not Recovered/Not Resolved]
  - Rash [Unknown]
  - Transfusion [Unknown]
  - Pain [Unknown]
  - Immobile [Unknown]
  - Hyperhidrosis [Unknown]
  - Headache [Unknown]
  - Decreased appetite [Unknown]
  - Pyrexia [Recovering/Resolving]
  - Arthralgia [Unknown]
  - Feeling abnormal [Unknown]
  - Fatigue [Unknown]
  - Exercise lack of [Unknown]
  - Emotional disorder [Unknown]
  - Depression [Unknown]
  - Cognitive disorder [Unknown]
  - Ear haemorrhage [Unknown]
  - Unevaluable event [Unknown]
